FAERS Safety Report 10900909 (Version 2)
Quarter: 2015Q2

REPORT INFORMATION
  Report Type: Spontaneous
  Country: US (occurrence: None)
  Receive Date: 20150303
  Receipt Date: 20150601
  Transmission Date: 20150821
  Serious: Yes (Death, Other)
  Sender: FDA-Public Use
  Company Number: 2015-10770

PATIENT
  Age: 63 Year
  Sex: Male
  Weight: 95.2 kg

DRUGS (1)
  1. EYLEA [Suspect]
     Active Substance: AFLIBERCEPT
     Indication: NEOVASCULAR AGE-RELATED MACULAR DEGENERATION
     Dosage: 2 MG MILLIGRAM(S), MONTHLY, INTRAOCULAR
     Route: 031
     Dates: start: 20141009, end: 20141009

REACTIONS (2)
  - Neoplasm malignant [None]
  - General physical health deterioration [None]
